FAERS Safety Report 4866705-3 (Version None)
Quarter: 2005Q4

REPORT INFORMATION
  Report Type: 
  Country: None (occurrence: None)
  Receive Date: 20051221
  Receipt Date: 20051205
  Transmission Date: 20060501
  Serious: Yes (Other)
  Sender: FDA-Public Use
  Company Number: L05-FIN-05666-01

PATIENT
  Sex: Male

DRUGS (2)
  1. CARBAMAZEPINE [Suspect]
     Indication: EPILEPSY
     Dosage: 1.2 G TRANSPLACENTAL
     Route: 064
  2. VIGABATRIN [Suspect]
     Indication: EPILEPSY
     Dosage: 1 G TRANSPLACENTAL
     Route: 064

REACTIONS (11)
  - CONGENITAL JAW MALFORMATION [None]
  - DRUG EXPOSURE DURING PREGNANCY [None]
  - EAR MALFORMATION [None]
  - FACIAL DYSMORPHISM [None]
  - FEEDING DISORDER NEONATAL [None]
  - HYPOTONIA NEONATAL [None]
  - RETROGNATHIA [None]
  - TOOTH MALFORMATION [None]
  - TRANSIENT TACHYPNOEA OF THE NEWBORN [None]
  - VISUAL ACUITY REDUCED [None]
  - VISUAL FIELD TESTS ABNORMAL [None]
